FAERS Safety Report 19200144 (Version 5)
Quarter: 2022Q4

REPORT INFORMATION
  Report Type: Report from Study
  Country: CA (occurrence: CA)
  Receive Date: 20210430
  Receipt Date: 20221124
  Transmission Date: 20230113
  Serious: Yes (Hospitalization, Other)
  Sender: FDA-Public Use
  Company Number: CA-NOVARTISPH-NVSC2020CA201759

PATIENT
  Age: 53 Year
  Sex: Female

DRUGS (5)
  1. MAYZENT [Suspect]
     Active Substance: SIPONIMOD
     Indication: Secondary progressive multiple sclerosis
     Dosage: UNK (DOSE: 0.25 OT)
     Route: 048
     Dates: start: 20200715
  2. MAYZENT [Suspect]
     Active Substance: SIPONIMOD
     Dosage: UNK
     Route: 048
     Dates: start: 20210724
  3. LIORESAL [Suspect]
     Active Substance: BACLOFEN
     Indication: Product used for unknown indication
     Dosage: 50 MG, QW5
     Route: 065
  4. LIORESAL [Suspect]
     Active Substance: BACLOFEN
     Dosage: 30 MG, QW5
     Route: 065
  5. LIORESAL [Suspect]
     Active Substance: BACLOFEN
     Dosage: 40 MG, QW (INSTEAD OF 30 MG)
     Route: 065

REACTIONS (13)
  - Intestinal obstruction [Unknown]
  - Syncope [Unknown]
  - Circulatory collapse [Unknown]
  - Blood pressure abnormal [Unknown]
  - Chromaturia [Unknown]
  - Pain in jaw [Unknown]
  - Trismus [Unknown]
  - Mastication disorder [Unknown]
  - Weight decreased [Unknown]
  - Hypertension [Unknown]
  - Nausea [Unknown]
  - Fatigue [Unknown]
  - Pain in extremity [Recovering/Resolving]

NARRATIVE: CASE EVENT DATE: 20200715
